FAERS Safety Report 21984233 (Version 1)
Quarter: 2023Q1

REPORT INFORMATION
  Report Type: Spontaneous
  Country: US (occurrence: None)
  Receive Date: 20230209
  Receipt Date: 20230209
  Transmission Date: 20230418
  Serious: Yes (Hospitalization)
  Sender: FDA-Public Use
  Company Number: None

PATIENT
  Sex: Female

DRUGS (3)
  1. VIGABATRIN [Suspect]
     Active Substance: VIGABATRIN
     Indication: Epilepsy
     Dosage: OTHER FREQUENCY : 2X DAILY FOR 3 DAY;?MIX 1 PACKET IN 10ML WATER AND GIVE 5ML BY MOUTH 2 TIMES DAILY
     Route: 048
     Dates: start: 202301
  2. VIGABATRIN [Suspect]
     Active Substance: VIGABATRIN
     Dosage: OTHER FREQUENCY : 2X DAILY FOR 3 DAY;?
     Route: 048
  3. VIGABATRIN [Suspect]
     Active Substance: VIGABATRIN
     Dosage: FREQUENCY : TWICE A DAY;?
     Route: 048

REACTIONS (1)
  - Seizure [None]
